FAERS Safety Report 4282562-0 (Version None)
Quarter: 2004Q1

REPORT INFORMATION
  Report Type: 
  Country: None (occurrence: None)
  Receive Date: 20040129
  Receipt Date: 20040115
  Transmission Date: 20041129
  Serious: Yes (Hospitalization)
  Sender: FDA-Public Use
  Company Number: US-JNJFOC-20040103223

PATIENT
  Age: 65 Year
  Sex: Male
  Weight: 73.4827 kg

DRUGS (5)
  1. INFLIXIMAB (INFLIXIMAB, RECOMBINANT) LYOPHILIZED POWDER [Suspect]
     Indication: CROHN'S DISEASE
     Dosage: 5 MG/KG INTRAVENOUS
     Route: 042
     Dates: start: 20020308
  2. MESALAMINE (MESALAZINE) [Concomitant]
  3. ANTIBIOTICS (ANTIBIOTICS) [Concomitant]
  4. NARCOTIC ANALGESICS (ANALGESICS) [Concomitant]
  5. ANTIDEPRESSANTS (ANTIDEPRESSANTS) [Concomitant]

REACTIONS (3)
  - CATHETER SEPSIS [None]
  - ESCHERICHIA SEPSIS [None]
  - URINARY TRACT INFECTION [None]
